FAERS Safety Report 20713110 (Version 1)
Quarter: 2022Q2

REPORT INFORMATION
  Report Type: Spontaneous
  Country: US (occurrence: None)
  Receive Date: 20220414
  Receipt Date: 20220414
  Transmission Date: 20220721
  Serious: No
  Sender: FDA-Public Use
  Company Number: None

PATIENT
  Age: 47 Year
  Sex: Female
  Weight: 81.65 kg

DRUGS (1)
  1. MOLNUPIRAVIR [Suspect]
     Active Substance: MOLNUPIRAVIR
     Indication: COVID-19
     Route: 048
     Dates: start: 20220406, end: 20220411

REACTIONS (5)
  - Periorbital swelling [None]
  - Eye swelling [None]
  - Swelling face [None]
  - Urticaria [None]
  - Drug ineffective [None]

NARRATIVE: CASE EVENT DATE: 20220412
